FAERS Safety Report 19113245 (Version 4)
Quarter: 2024Q3

REPORT INFORMATION
  Report Type: Report from Study
  Country: BR (occurrence: BR)
  Receive Date: 20210408
  Receipt Date: 20240902
  Transmission Date: 20241017
  Serious: Yes (Life-Threatening, Hospitalization, Other)
  Sender: NOVARTIS
  Company Number: NVSC2020BR001109

PATIENT
  Sex: Female
  Weight: 63 kg

DRUGS (18)
  1. COSENTYX [Suspect]
     Active Substance: SECUKINUMAB
     Indication: Psoriatic arthropathy
     Dosage: 300 MG, QMO
     Route: 065
     Dates: start: 20191129
  2. COSENTYX [Suspect]
     Active Substance: SECUKINUMAB
     Indication: Psoriasis
     Dosage: 2 SYRINGES, QMO
     Route: 065
     Dates: start: 2019
  3. COSENTYX [Suspect]
     Active Substance: SECUKINUMAB
     Dosage: 300 MG, QMO
     Route: 065
  4. COSENTYX [Suspect]
     Active Substance: SECUKINUMAB
     Dosage: UNK
     Route: 065
     Dates: start: 20200103
  5. COSENTYX [Suspect]
     Active Substance: SECUKINUMAB
     Dosage: 300 MG, UNKNOWN (150 MG PEN)
     Route: 065
  6. COSENTYX [Suspect]
     Active Substance: SECUKINUMAB
     Dosage: 300 MG, UNKNOWN (150 MG PEN)
     Route: 065
  7. COSENTYX [Suspect]
     Active Substance: SECUKINUMAB
     Dosage: UNK
     Route: 065
     Dates: start: 20210325
  8. COSENTYX [Suspect]
     Active Substance: SECUKINUMAB
     Dosage: UNK
     Route: 065
     Dates: start: 20210429
  9. COSENTYX [Suspect]
     Active Substance: SECUKINUMAB
     Dosage: UNK
     Route: 065
     Dates: start: 20210629
  10. GABAPENTIN [Suspect]
     Active Substance: GABAPENTIN
     Indication: Product used for unknown indication
     Dosage: UNK (FREQUENCY: CONTINUOUS)
     Route: 065
  11. LEFLUNOMIDE [Concomitant]
     Active Substance: LEFLUNOMIDE
     Indication: Psoriasis
     Dosage: UNK
     Route: 065
  12. LEFLUNOMIDE [Concomitant]
     Active Substance: LEFLUNOMIDE
     Indication: Psoriatic arthropathy
     Dosage: 1 DF, QD
     Route: 065
  13. LEFLUNOMIDE [Concomitant]
     Active Substance: LEFLUNOMIDE
     Dosage: 3 DF, QW (THREE TIMES A WEEK)
     Route: 065
  14. ETANERCEPT [Concomitant]
     Active Substance: ETANERCEPT
     Indication: Psoriasis
     Dosage: UNK
     Route: 065
  15. AMITRIPTYLINE HYDROCHLORIDE [Concomitant]
     Active Substance: AMITRIPTYLINE HYDROCHLORIDE
     Indication: Product used for unknown indication
     Dosage: 25 MG, UNKNOWN
     Route: 065
  16. RISEDRONATE SODIUM [Concomitant]
     Active Substance: RISEDRONATE SODIUM
     Indication: Osteoporosis
     Dosage: 35 MG, UNKNOWN
     Route: 065
  17. DIPYRONE [Concomitant]
     Active Substance: DIPYRONE
     Indication: Product used for unknown indication
     Dosage: 500 ML, UNKNOWN
     Route: 065
  18. MORPHINE [Concomitant]
     Active Substance: MORPHINE
     Indication: Product used for unknown indication
     Dosage: UNK
     Route: 065

REACTIONS (30)
  - Myocardial infarction [Recovered/Resolved]
  - Infarction [Recovered/Resolved with Sequelae]
  - Angina pectoris [Unknown]
  - Cardiac ventricular thrombosis [Unknown]
  - Syncope [Recovered/Resolved with Sequelae]
  - Seizure [Unknown]
  - Encephalopathy [Unknown]
  - Tachycardia [Unknown]
  - Malaise [Unknown]
  - Feeling abnormal [Unknown]
  - Spinal disorder [Not Recovered/Not Resolved]
  - Movement disorder [Not Recovered/Not Resolved]
  - Pain [Recovered/Resolved]
  - Pain [Unknown]
  - Psoriasis [Unknown]
  - Diarrhoea [Recovering/Resolving]
  - Urinary incontinence [Not Recovered/Not Resolved]
  - Sensory loss [Not Recovered/Not Resolved]
  - Hepatic steatosis [Unknown]
  - Decreased appetite [Unknown]
  - Finger deformity [Unknown]
  - Lactose intolerance [Recovered/Resolved]
  - Osteopenia [Recovered/Resolved]
  - Spinal pain [Unknown]
  - Weight decreased [Recovered/Resolved]
  - Dizziness [Unknown]
  - Anaemia [Unknown]
  - Dysphagia [Not Recovered/Not Resolved]
  - Dysphonia [Not Recovered/Not Resolved]
  - Tongue disorder [Not Recovered/Not Resolved]

NARRATIVE: CASE EVENT DATE: 20190101
